FAERS Safety Report 5072233-5 (Version None)
Quarter: 2006Q3

REPORT INFORMATION
  Report Type: 
  Country: None (occurrence: None)
  Receive Date: 20060807
  Receipt Date: 20060629
  Transmission Date: 20061208
  Serious: Yes (Death)
  Sender: FDA-Public Use
  Company Number: US-BRISTOL-MYERS SQUIBB COMPANY-13429725

PATIENT
  Age: 48 Year
  Sex: Female

DRUGS (3)
  1. ETOPOSIDE [Suspect]
     Indication: METASTATIC NEOPLASM
     Route: 048
     Dates: start: 20060215, end: 20060225
  2. PACLITAXEL [Concomitant]
  3. CARBOPLATIN [Concomitant]
     Route: 042

REACTIONS (1)
  - MALIGNANT NEOPLASM PROGRESSION [None]
